FAERS Safety Report 16702690 (Version 2)
Quarter: 2019Q4

REPORT INFORMATION
  Report Type: Spontaneous
  Country: BR (occurrence: BR)
  Receive Date: 20190814
  Receipt Date: 20191203
  Transmission Date: 20200122
  Serious: Yes (Other)
  Sender: FDA-Public Use
  Company Number: BR-ASTRAZENECA-2019SF12968

PATIENT
  Age: 26481 Day
  Sex: Male

DRUGS (5)
  1. CEBRALAT [Concomitant]
     Active Substance: CILOSTAZOL
  2. DIOVAN [Concomitant]
     Active Substance: VALSARTAN
  3. ROSUVASTATIN. [Suspect]
     Active Substance: ROSUVASTATIN
     Dosage: 5/1000 MG
     Route: 048
  4. ANCORON [Concomitant]
     Active Substance: AMIODARONE HYDROCHLORIDE
  5. XIGDUO XR [Suspect]
     Active Substance: DAPAGLIFLOZIN PROPANEDIOL\METFORMIN HYDROCHLORIDE
     Indication: DIABETES MELLITUS
     Dosage: TWO TIMES A DAY
     Route: 048
     Dates: start: 2017, end: 201907

REACTIONS (2)
  - Oesophageal neoplasm [Not Recovered/Not Resolved]
  - Product dose omission [Not Recovered/Not Resolved]

NARRATIVE: CASE EVENT DATE: 201905
